FAERS Safety Report 9582471 (Version 1)
Quarter: 2013Q4

REPORT INFORMATION
  Report Type: Spontaneous
  Country: US (occurrence: US)
  Receive Date: 20131002
  Receipt Date: 20131002
  Transmission Date: 20140711
  Serious: No
  Sender: FDA-Public Use
  Company Number: US-AMGEN-USASP2013040766

PATIENT
  Sex: Male

DRUGS (1)
  1. ENBREL [Suspect]
     Indication: PSORIASIS
     Dosage: UNK UNK, TWICE WEEKLY
     Route: 065
     Dates: start: 20130510, end: 20130530

REACTIONS (3)
  - Influenza like illness [Recovered/Resolved]
  - Injection site erythema [Unknown]
  - Injection site pain [Unknown]
